FAERS Safety Report 4989853-6 (Version None)
Quarter: 2006Q2

REPORT INFORMATION
  Report Type: 
  Country: None (occurrence: None)
  Receive Date: 20060428
  Receipt Date: 20060421
  Transmission Date: 20061013
  Serious: Yes (Other)
  Sender: FDA-Public Use
  Company Number: HQWYE925121APR06

PATIENT
  Age: 71 Year
  Sex: Female

DRUGS (4)
  1. ARTANE [Suspect]
     Dosage: 4 MG 1X PER 1 DAY ORAL
     Route: 048
     Dates: start: 20060401
  2. ARICEPT [Concomitant]
  3. HALOPERIDOL [Concomitant]
  4. DEPAS (ETIZOLAM) [Concomitant]

REACTIONS (1)
  - CONVULSION [None]
